FAERS Safety Report 7420343-7 (Version None)
Quarter: 2011Q2

REPORT INFORMATION
  Report Type: 
  Country: None (occurrence: None)
  Receive Date: 20110418
  Receipt Date: 20110414
  Transmission Date: 20111010
  Serious: Yes (Life-Threatening)
  Sender: FDA-Public Use
  Company Number: NO-B.I. PHARMACEUTICALS,INC./RIDGEFIELD-2011-SW-00158NO

PATIENT
  Sex: Female

DRUGS (5)
  1. LEVOTHYROXINE SODIUM [Concomitant]
     Dosage: 50 MCG
     Route: 048
  2. ATACAND HCT [Concomitant]
     Indication: HYPERTENSION
     Dosage: 1 ANZ
     Route: 048
  3. PERSANTIN [Suspect]
     Dosage: 400 MG
     Route: 048
  4. ALBYL-E [Suspect]
     Indication: TRANSIENT ISCHAEMIC ATTACK
     Dosage: 160 MG
     Route: 048
  5. ALLOPUR [Concomitant]
     Dosage: 100 MG
     Route: 048

REACTIONS (3)
  - ULCER HAEMORRHAGE [None]
  - HAEMATEMESIS [None]
  - GASTRIC ULCER [None]
